FAERS Safety Report 6749607-7 (Version None)
Quarter: 2010Q2

REPORT INFORMATION
  Report Type: 
  Country: None (occurrence: None)
  Receive Date: 20100601
  Receipt Date: 20100525
  Transmission Date: 20101027
  Serious: Yes (Hospitalization)
  Sender: FDA-Public Use
  Company Number: A0856808A

PATIENT
  Sex: Female
  Weight: 83.5 kg

DRUGS (7)
  1. TYKERB [Suspect]
     Dosage: 1250MG PER DAY
     Route: 048
     Dates: start: 20100418, end: 20100508
  2. XELODA [Suspect]
     Dosage: 1300MG TWICE PER DAY
     Route: 048
     Dates: start: 20100417, end: 20100426
  3. DECADRON [Concomitant]
     Route: 065
  4. COZAAR [Concomitant]
     Indication: BLOOD PRESSURE ABNORMAL
     Dosage: 100MG PER DAY
     Route: 065
  5. HCTZ [Concomitant]
     Route: 065
  6. LOSEC I.V. [Concomitant]
     Route: 065
  7. RABEPRAZOLE SODIUM [Concomitant]
     Dosage: 20MG PER DAY
     Route: 065
     Dates: start: 20100220

REACTIONS (5)
  - ASTHENIA [None]
  - CYSTITIS [None]
  - DECREASED APPETITE [None]
  - DIARRHOEA [None]
  - EPISTAXIS [None]
